FAERS Safety Report 9770040 (Version 1)
Quarter: 2013Q4

REPORT INFORMATION
  Report Type: Spontaneous
  Country: US (occurrence: US)
  Receive Date: 20131218
  Receipt Date: 20131218
  Transmission Date: 20140711
  Serious: No
  Sender: FDA-Public Use
  Company Number: US-VERTEX PHARMACEUTICALS INC-AE-2011-000896

PATIENT
  Sex: 0

DRUGS (12)
  1. INCIVEK [Suspect]
     Indication: HEPATITIS C
     Route: 048
     Dates: start: 20110725
  2. RIBAVIRIN [Concomitant]
     Indication: HEPATITIS C
     Route: 048
     Dates: start: 20110725
  3. PEGASYS [Concomitant]
     Indication: HEPATITIS C
     Route: 058
     Dates: start: 20110725
  4. NEURONTIN [Concomitant]
     Route: 048
  5. NORCO [Concomitant]
     Route: 048
  6. DEPAKOTE [Concomitant]
     Route: 048
  7. XANAX [Concomitant]
     Route: 048
  8. LAMICTAL [Concomitant]
     Route: 048
  9. COMPAZINE [Concomitant]
     Route: 048
  10. FLEXERIL [Concomitant]
     Indication: MUSCLE SPASMS
     Route: 048
  11. ARISTOCORT [Concomitant]
     Indication: PRURITUS
     Route: 061
  12. MARIJUANA [Concomitant]
     Indication: NAUSEA

REACTIONS (3)
  - Irritability [Not Recovered/Not Resolved]
  - Hypersomnia [Unknown]
  - Depression [Not Recovered/Not Resolved]
